FAERS Safety Report 7338268-4 (Version None)
Quarter: 2011Q1

REPORT INFORMATION
  Report Type: 
  Country: None (occurrence: None)
  Receive Date: 20110308
  Receipt Date: 20110224
  Transmission Date: 20110831
  Serious: Yes (Other)
  Sender: FDA-Public Use
  Company Number: ES-PFIZER INC-2011047745

PATIENT
  Age: 37 Year
  Sex: Female

DRUGS (1)
  1. ATARAX [Suspect]
     Dosage: 25 MG, 2X/DAY
     Route: 048
     Dates: start: 20101101, end: 20101101

REACTIONS (2)
  - CHOKING SENSATION [None]
  - OROPHARYNGEAL PAIN [None]
